FAERS Safety Report 9250450 (Version 1)
Quarter: 2013Q1

REPORT INFORMATION
  Report Type: Spontaneous
  Country: US (occurrence: None)
  Receive Date: 20130305
  Receipt Date: 20130305
  Transmission Date: 20140127
  Serious: Yes (Other)
  Sender: FDA-Public Use
  Company Number: 163-21880-12062807

PATIENT
  Age: 79 Year
  Sex: Male

DRUGS (6)
  1. REVLIMID [Suspect]
     Indication: MYELODYSPLASTIC SYNDROME
     Dosage: 10 MG, QD X 21 DAYS, PO
     Dates: start: 20100622, end: 20120619
  2. CITALOPRAM (CITALOPRAM) [Concomitant]
  3. ASA (ACETYLSALICYLIC ACID) [Concomitant]
  4. IMODIUM A-D (LOPERAMIDE HYDROCHLORIDE) [Concomitant]
  5. METOPROLOL (METOPROLOL) [Concomitant]
  6. FLOMAX (TAMSULOSIN HYDROCHLORIDE) [Concomitant]

REACTIONS (1)
  - Drug ineffective [None]
